FAERS Safety Report 7412043-4 (Version None)
Quarter: 2011Q2

REPORT INFORMATION
  Report Type: 
  Country: None (occurrence: None)
  Receive Date: 20110413
  Receipt Date: 20110404
  Transmission Date: 20111010
  Serious: Yes (Hospitalization)
  Sender: FDA-Public Use
  Company Number: MY-BRISTOL-MYERS SQUIBB COMPANY-15651953

PATIENT
  Age: 48 Year
  Sex: Male

DRUGS (4)
  1. AMOXICILLIN [Suspect]
     Indication: PYREXIA
  2. CEFADROXIL [Suspect]
     Indication: PAIN
  3. AMOXICILLIN [Suspect]
     Indication: PAIN
  4. CEFADROXIL [Suspect]
     Indication: PYREXIA

REACTIONS (1)
  - TOXIC EPIDERMAL NECROLYSIS [None]
